FAERS Safety Report 9605228 (Version 1)
Quarter: 2013Q4

REPORT INFORMATION
  Report Type: Spontaneous
  Country: US (occurrence: US)
  Receive Date: 20131008
  Receipt Date: 20131008
  Transmission Date: 20140711
  Serious: No
  Sender: FDA-Public Use
  Company Number: US-BAYER-2013-115455

PATIENT
  Sex: Female

DRUGS (1)
  1. YAZ [Suspect]
     Indication: ENDOMETRIOSIS
     Dosage: UNK
     Route: 048
     Dates: start: 2003

REACTIONS (2)
  - Off label use [None]
  - Solar lentigo [Not Recovered/Not Resolved]
